FAERS Safety Report 8187005 (Version 3)
Quarter: 2012Q4

REPORT INFORMATION
  Report Type: 
  Country: US (occurrence: US)
  Receive Date: 20111018
  Receipt Date: 20121213
  Transmission Date: 20130627
  Serious: No
  Sender: FDA-Public Use
  Company Number: US-ASTRAZENECA-2011SE47096

PATIENT
  Age: 76 Year
  Sex: Male

DRUGS (2)
  1. SYMBICORT PMDI [Suspect]
     Dosage: 160/4.5MCG DAILY
     Route: 055
  2. COMBIVENT [Concomitant]

REACTIONS (3)
  - Dyspnoea [Unknown]
  - Frustration [Unknown]
  - Drug dose omission [Unknown]
